FAERS Safety Report 23061004 (Version 20)
Quarter: 2024Q2

REPORT INFORMATION
  Report Type: Report from Study
  Country: NL (occurrence: NL)
  Receive Date: 20231013
  Receipt Date: 20240507
  Transmission Date: 20240716
  Serious: Yes (Hospitalization)
  Sender: FDA-Public Use
  Company Number: NL-ABBVIE-5444968

PATIENT
  Age: 61 Year
  Sex: Male

DRUGS (33)
  1. CARBIDOPA\LEVODOPA [Suspect]
     Active Substance: CARBIDOPA\LEVODOPA
     Indication: Parkinson^s disease
     Route: 050
  2. CARBIDOPA\LEVODOPA [Suspect]
     Active Substance: CARBIDOPA\LEVODOPA
     Route: 050
  3. CARBIDOPA\LEVODOPA [Suspect]
     Active Substance: CARBIDOPA\LEVODOPA
     Dosage: ND: 0.0, CND: 2.5 ML/H, END: 2.0 ML?DURATION TEXT: GOES TO 24 HOURS
     Route: 050
     Dates: start: 20240320, end: 20240409
  4. CARBIDOPA\LEVODOPA [Suspect]
     Active Substance: CARBIDOPA\LEVODOPA
  5. CARBIDOPA\LEVODOPA [Suspect]
     Active Substance: CARBIDOPA\LEVODOPA
     Dosage: MD:12.5 ML; CD:5.0 ML/H; ED:3.0 ML? DURATION TEXT: REMAINS AT 16 HOURS
     Route: 050
     Dates: start: 20230704, end: 20230711
  6. CARBIDOPA\LEVODOPA [Suspect]
     Active Substance: CARBIDOPA\LEVODOPA
     Dosage: MD:12.5 ML; CD:4.8 ML/H; ED:3.0 ML? DURATION TEXT: REMAINS AT 16 HOURS
     Route: 050
     Dates: start: 20230629, end: 20230704
  7. CARBIDOPA\LEVODOPA [Suspect]
     Active Substance: CARBIDOPA\LEVODOPA
     Dosage: CND: 2.0 ML/H, END: 3.1 ML?DURATION TEXT: REMAINS AT 24 HOURS
     Route: 050
     Dates: start: 20240409, end: 20240410
  8. CARBIDOPA\LEVODOPA [Suspect]
     Active Substance: CARBIDOPA\LEVODOPA
     Dosage: CD: 5.2ML/H?DURATION TEXT: REMAINS AT 24 HOURS
     Route: 050
     Dates: start: 20240417
  9. CARBIDOPA\LEVODOPA [Suspect]
     Active Substance: CARBIDOPA\LEVODOPA
     Dosage: DURATION TEXT: REMAINS AT 16 HOURS, LAST ADMIN DATE: 2023
     Route: 050
     Dates: start: 20230515
  10. CARBIDOPA\LEVODOPA [Suspect]
     Active Substance: CARBIDOPA\LEVODOPA
     Dosage: MD:12.5ML; ADDITIONAL TUBE FILLING: 2.5 ML, CD:4.5ML/H; ED:3.0ML,?DURATION TEXT: REMAINS AT 16 HOURS
     Route: 050
     Dates: start: 20230622, end: 20230629
  11. CARBIDOPA\LEVODOPA [Suspect]
     Active Substance: CARBIDOPA\LEVODOPA
     Dosage: MD:12.5 ML; CD:5.0 ML/H; ED:3.0 ML?REMAINS AT 16 HOURS
     Route: 050
     Dates: start: 20231106, end: 20231204
  12. CARBIDOPA\LEVODOPA [Suspect]
     Active Substance: CARBIDOPA\LEVODOPA
     Route: 050
  13. CARBIDOPA\LEVODOPA [Suspect]
     Active Substance: CARBIDOPA\LEVODOPA
     Dosage: CND: 2.0 ML/H, END: 3.3 ML?DURATION TEXT: REMAINS AT 24 HOURS
     Route: 050
     Dates: start: 20240410, end: 20240417
  14. CARBIDOPA\LEVODOPA [Suspect]
     Active Substance: CARBIDOPA\LEVODOPA
     Dosage: MD:12.5 ML; CD:5.2 ML/H; ED:3.0 ML, DURATION TEXT: REMAINS AT 16 HOURS
     Route: 050
     Dates: start: 20230711, end: 20231106
  15. CARBIDOPA\LEVODOPA [Suspect]
     Active Substance: CARBIDOPA\LEVODOPA
     Dosage: MD:12.5 ML; CD:5.0 ML/H; ED:3.0 ML?REMAINS AT 16 HOURS
     Route: 050
     Dates: start: 20231204, end: 20231220
  16. CARBIDOPA\LEVODOPA [Suspect]
     Active Substance: CARBIDOPA\LEVODOPA
     Route: 050
  17. ACETAMINOPHEN [Concomitant]
     Active Substance: ACETAMINOPHEN
     Indication: Product used for unknown indication
     Route: 048
  18. ACETAMINOPHEN [Concomitant]
     Active Substance: ACETAMINOPHEN
     Indication: Product used for unknown indication
     Dosage: FORM STRENGTH: 1000 MG?FREQUENCY: IF NECESSARY, 4 TIMES 1 PER DAY
     Route: 048
  19. MESALAMINE [Concomitant]
     Active Substance: MESALAMINE
     Indication: Product used for unknown indication
     Dosage: FORM STRENGTH: 1200 MG
     Route: 048
  20. SODIUM CHLORIDE [Concomitant]
     Active Substance: SODIUM CHLORIDE
     Indication: Irrigation therapy
     Dosage: FORM STRENGTH: 9 MILLIGRAM/MILLILITERS
  21. CARBIDOPA LEVODOPA [Concomitant]
     Active Substance: CARBIDOPA\LEVODOPA
     Indication: Product used for unknown indication
     Dosage: FORM STRENGTH: 125 MILIGRAM
     Route: 048
  22. TAMSULOSIN [Concomitant]
     Active Substance: TAMSULOSIN
     Indication: Product used for unknown indication
     Dosage: CONTROLLED RELEASE (CR)?FORM STRENGTH 400 MICROGRAMS
     Route: 048
  23. CARBIDOPA AND LEVODOPA [Concomitant]
     Active Substance: CARBIDOPA\LEVODOPA
     Indication: Product used for unknown indication
     Dosage: 2 TABLET, FORM STRENGTH: 125 MILLIGRAM, FREQUENCY TEXT: 1 INTO 2 AT 10PM, CR
     Route: 048
  24. SINEMET [Concomitant]
     Active Substance: CARBIDOPA\LEVODOPA
     Indication: Product used for unknown indication
     Dosage: CONTROLLED RELEASE (CR)?2 TABLET ?FORM STRENGTH: 125 MILLIGRAMS?FREQUENCY TEXT: 1 INTO 2 AT 10PM
     Route: 048
  25. PERINDOPRIL [Concomitant]
     Active Substance: PERINDOPRIL
     Indication: Product used for unknown indication
     Dosage: FORM STRENGTH: 2 MILLIGRAM
     Route: 048
  26. GLICLAZIDE [Concomitant]
     Active Substance: GLICLAZIDE
     Indication: Product used for unknown indication
     Dosage: FORM STRENGTH: 30 MILLIGRAM?CONTROLLED RELEASE (CR)
     Route: 048
  27. VILDAGLIPTIN [Concomitant]
     Active Substance: VILDAGLIPTIN
     Indication: Product used for unknown indication
     Dosage: FORM STRENGTH: 50 MILLIGRAM
     Route: 048
  28. FLUTICASONE PROPIONATE [Concomitant]
     Active Substance: FLUTICASONE PROPIONATE
     Indication: Product used for unknown indication
     Dosage: 2 TIMES PER DAY HALF OF AN AMPOULE INTO EACH NOSTRILS?FORM STRENGTH: 400 MICROLITRE(S)
     Route: 045
  29. SIMVASTATIN [Concomitant]
     Active Substance: SIMVASTATIN
     Indication: Product used for unknown indication
     Dosage: FORM STRENGTH: 20 MILLIGRAMS
     Route: 048
  30. ROPINIROLE [Concomitant]
     Active Substance: ROPINIROLE
     Indication: Product used for unknown indication
     Dosage: FORM STRENGTH: 4 MILLIGRAMS?CONTROLLED RELEASE (CR)
     Route: 048
  31. ROPINIROLE [Concomitant]
     Active Substance: ROPINIROLE
     Indication: Product used for unknown indication
     Dosage: FORM STRENGTH: 2 MILLIGRAM?CONTROLLED RELEASE (CR)
     Route: 048
  32. METFORMIN [Concomitant]
     Active Substance: METFORMIN HYDROCHLORIDE
     Indication: Product used for unknown indication
     Dosage: 1 UNIT?FORM STRENGTH: 500 MILLIGRAM
     Route: 048
  33. BENSERAZIDE HYDROCHLORIDE\LEVODOPA [Concomitant]
     Active Substance: BENSERAZIDE HYDROCHLORIDE\LEVODOPA
     Indication: On and off phenomenon
     Dosage: TIME INTERVAL: 0.33333333 DAYS: 1 UNIT, FORM STRENGTH: 125 MG
     Route: 048

REACTIONS (52)
  - Rehabilitation therapy [Recovered/Resolved]
  - Fall [Recovered/Resolved]
  - Urinary tract infection [Recovered/Resolved]
  - Pyrexia [Recovered/Resolved]
  - Abdominal distension [Not Recovered/Not Resolved]
  - Dyskinesia [Not Recovered/Not Resolved]
  - Urosepsis [Not Recovered/Not Resolved]
  - Bladder catheterisation [Not Recovered/Not Resolved]
  - Memory impairment [Not Recovered/Not Resolved]
  - On and off phenomenon [Not Recovered/Not Resolved]
  - Respiratory tract infection [Not Recovered/Not Resolved]
  - Pyrexia [Recovering/Resolving]
  - Hyperkinesia [Not Recovered/Not Resolved]
  - Device colour issue [Not Recovered/Not Resolved]
  - Bowel movement irregularity [Recovering/Resolving]
  - Weight decreased [Not Recovered/Not Resolved]
  - Musculoskeletal stiffness [Not Recovered/Not Resolved]
  - Parkinson^s disease [Not Recovered/Not Resolved]
  - Muscle rigidity [Not Recovered/Not Resolved]
  - Tension [Not Recovered/Not Resolved]
  - Poor quality sleep [Not Recovered/Not Resolved]
  - Hospitalisation [Recovered/Resolved]
  - Abnormal dreams [Not Recovered/Not Resolved]
  - Balance disorder [Not Recovered/Not Resolved]
  - Device issue [Not Recovered/Not Resolved]
  - Product administration error [Not Recovered/Not Resolved]
  - Speech disorder [Not Recovered/Not Resolved]
  - Therapeutic product effect incomplete [Not Recovered/Not Resolved]
  - Abdominal rigidity [Not Recovered/Not Resolved]
  - Therapeutic product effect incomplete [Not Recovered/Not Resolved]
  - Musculoskeletal disorder [Not Recovered/Not Resolved]
  - Device dislocation [Unknown]
  - Abnormal faeces [Not Recovered/Not Resolved]
  - Mobility decreased [Not Recovered/Not Resolved]
  - Stress [Not Recovered/Not Resolved]
  - Visual impairment [Not Recovered/Not Resolved]
  - Bladder discomfort [Not Recovered/Not Resolved]
  - Micturition urgency [Unknown]
  - Tremor [Not Recovered/Not Resolved]
  - Device occlusion [Unknown]
  - Cystitis [Unknown]
  - Unevaluable event [Not Recovered/Not Resolved]
  - Bronchitis [Not Recovered/Not Resolved]
  - Influenza [Not Recovered/Not Resolved]
  - Tremor [Not Recovered/Not Resolved]
  - Rehabilitation therapy [Not Recovered/Not Resolved]
  - Anxiety [Recovering/Resolving]
  - Loss of personal independence in daily activities [Not Recovered/Not Resolved]
  - Bladder disorder [Not Recovered/Not Resolved]
  - Movement disorder [Not Recovered/Not Resolved]
  - Therapeutic product effect incomplete [Not Recovered/Not Resolved]
  - Therapeutic product effect delayed [Not Recovered/Not Resolved]

NARRATIVE: CASE EVENT DATE: 20230101
